FAERS Safety Report 7525240-4 (Version None)
Quarter: 2011Q2

REPORT INFORMATION
  Report Type: 
  Country: None (occurrence: None)
  Receive Date: 20110606
  Receipt Date: 20110530
  Transmission Date: 20111010
  Serious: Yes (Hospitalization)
  Sender: FDA-Public Use
  Company Number: UA-GENZYME-CERZ-1002095

PATIENT
  Weight: 19.5 kg

DRUGS (1)
  1. CEREZYME [Suspect]
     Indication: GAUCHER'S DISEASE
     Dosage: UNK
     Route: 042
     Dates: start: 20060101

REACTIONS (3)
  - DISEASE PROGRESSION [None]
  - SPLENOMEGALY [None]
  - GAUCHER'S DISEASE [None]
